FAERS Safety Report 17890231 (Version 2)
Quarter: 2020Q2

REPORT INFORMATION
  Report Type: Report from Study
  Country: CL (occurrence: CL)
  Receive Date: 20200612
  Receipt Date: 20200629
  Transmission Date: 20200714
  Serious: Yes (Hospitalization, Other)
  Sender: FDA-Public Use
  Company Number: CL-SHIRE-CL202019163

PATIENT

DRUGS (3)
  1. FEIBA NF [Suspect]
     Active Substance: ANTI-INHIBITOR COAGULANT COMPLEX
     Dosage: 3000 UNK, EVERY 12 HOURS FOR 7 DAYS
     Route: 065
     Dates: start: 20200605
  2. FEIBA NF [Suspect]
     Active Substance: ANTI-INHIBITOR COAGULANT COMPLEX
     Indication: HAEMOPHILIA
     Dosage: 1000 INTERNATIONAL UNIT, 3X A WEEK
     Route: 042
  3. FEIBA NF [Suspect]
     Active Substance: ANTI-INHIBITOR COAGULANT COMPLEX
     Dosage: 3000 INTERNATIONAL UNIT, EVERY 24 HOURS FOR 7 DAYS
     Route: 042
     Dates: start: 20200612

REACTIONS (2)
  - Cholelithiasis [Unknown]
  - Gastrointestinal haemorrhage [Unknown]
